FAERS Safety Report 22046887 (Version 12)
Quarter: 2023Q2

REPORT INFORMATION
  Report Type: Spontaneous
  Country: CZ (occurrence: CZ)
  Receive Date: 20230228
  Receipt Date: 20230601
  Transmission Date: 20230721
  Serious: Yes (Hospitalization, Other)
  Sender: FDA-Public Use
  Company Number: CZ-MYLANLABS-2023M1017858

PATIENT
  Age: 53 Year
  Sex: Female

DRUGS (24)
  1. GABAPENTIN [Suspect]
     Active Substance: GABAPENTIN
     Indication: Migraine
     Dosage: 1500 MILLIGRAM, ONCE A DAY, 500 MG, 3X/DAY
     Route: 065
  2. IBUPROFEN [Suspect]
     Active Substance: IBUPROFEN
     Indication: Migraine without aura
     Dosage: UNK
     Route: 048
  3. LEVETIRACETAM [Suspect]
     Active Substance: LEVETIRACETAM
     Indication: Migraine
     Dosage: UNK
     Route: 065
  4. METOPROLOL [Suspect]
     Active Substance: METOPROLOL
     Indication: Migraine without aura
     Dosage: 200 MILLIGRAM, ONCE A DAY ((100 MILLIGRAM, BID (2X100 MG A DAY)  )
     Route: 065
  5. METOPROLOL [Suspect]
     Active Substance: METOPROLOL
     Indication: Migraine
     Dosage: 100 MILLIGRAM, ONCE A DAY (50 MILLIGRAM, BID (2X50 MG) )
     Route: 065
  6. TRAMADOL [Suspect]
     Active Substance: TRAMADOL
     Indication: Migraine without aura
     Dosage: UNK
     Route: 048
  7. AMITRIPTYLINE [Suspect]
     Active Substance: AMITRIPTYLINE
     Indication: Migraine without aura
     Dosage: 25 MILLIGRAM, ONCE A DAY,25 MG, 1X/DAY
     Route: 065
  8. AMITRIPTYLINE [Suspect]
     Active Substance: AMITRIPTYLINE
     Indication: Migraine
  9. DIHYDROERGOTAMINE [Suspect]
     Active Substance: DIHYDROERGOTAMINE
     Indication: Migraine without aura
     Dosage: UNK
     Route: 042
  10. DIHYDROERGOTAMINE [Suspect]
     Active Substance: DIHYDROERGOTAMINE
     Indication: Migraine
  11. DIHYDROERGOTAMINE [Suspect]
     Active Substance: DIHYDROERGOTAMINE
     Indication: Prophylaxis
     Dosage: UNK
     Route: 065
  12. DIHYDROERGOTAMINE [Suspect]
     Active Substance: DIHYDROERGOTAMINE
     Indication: Migraine without aura
  13. FLUNARIZINE [Suspect]
     Active Substance: FLUNARIZINE
     Indication: Prophylaxis
     Dosage: UNK
     Route: 065
  14. FLUNARIZINE [Suspect]
     Active Substance: FLUNARIZINE
     Indication: Migraine without aura
  15. OXETORONE [Suspect]
     Active Substance: OXETORONE
     Indication: Prophylaxis
     Dosage: UNK
     Route: 065
  16. OXETORONE [Suspect]
     Active Substance: OXETORONE
     Indication: Migraine without aura
  17. VALPROATE SODIUM [Suspect]
     Active Substance: VALPROATE SODIUM
     Indication: Migraine without aura
     Dosage: 900 MILLIGRAM, ONCE A DAY (DAILY DOSE UP TO 3X300 MG)
     Route: 065
  18. VALPROATE SODIUM [Suspect]
     Active Substance: VALPROATE SODIUM
     Dosage: 300 MILLIGRAM, ONCE A DAY, 300 MG, 1X/DAY
     Route: 065
  19. TOPIRAMATE [Suspect]
     Active Substance: TOPIRAMATE
     Indication: Migraine without aura
     Dosage: UNK
     Route: 048
  20. TOPIRAMATE [Suspect]
     Active Substance: TOPIRAMATE
     Indication: Migraine
  21. VALPROATE [Suspect]
     Active Substance: VALPROIC ACID
     Indication: Migraine without aura
     Dosage: 300 MILLIGRAM, ONCE A DAY
     Route: 065
  22. VALPROATE [Suspect]
     Active Substance: VALPROIC ACID
     Dosage: 900 MILLIGRAM, ONCE A DAY (3X300 MG A DAY)
     Route: 065
  23. TOPIRAMATE [Suspect]
     Active Substance: TOPIRAMATE
     Indication: Migraine without aura
     Dosage: UNK
     Route: 048
  24. TRAMADOL HYDROCHLORIDE [Suspect]
     Active Substance: TRAMADOL HYDROCHLORIDE
     Indication: Migraine without aura
     Dosage: UNK
     Route: 048

REACTIONS (16)
  - Loss of consciousness [Recovered/Resolved]
  - Syncope [Recovered/Resolved]
  - Drug abuse [Recovered/Resolved]
  - Drug dependence [Recovered/Resolved]
  - Hypotension [Recovered/Resolved]
  - Withdrawal syndrome [Recovered/Resolved]
  - Drug withdrawal syndrome [Recovered/Resolved]
  - Toxicity to various agents [Recovered/Resolved]
  - Circulatory collapse [Unknown]
  - Intentional product misuse [Recovered/Resolved]
  - Therapeutic product effect decreased [Recovered/Resolved]
  - Drug intolerance [Recovered/Resolved]
  - Therapeutic product effect incomplete [Recovered/Resolved]
  - Drug ineffective [Recovered/Resolved]
  - Off label use [Unknown]
  - Drug ineffective for unapproved indication [Unknown]
